FAERS Safety Report 6491866-2 (Version None)
Quarter: 2009Q4

REPORT INFORMATION
  Report Type: 
  Country: None (occurrence: None)
  Receive Date: 20091125
  Receipt Date: 20090909
  Transmission Date: 20100525
  Serious: Yes (Other)
  Sender: FDA-Public Use
  Company Number: 2009BH012623

PATIENT
  Age: 76 Year
  Sex: Male

DRUGS (16)
  1. DIANEAL [Suspect]
     Indication: PERITONEAL DIALYSIS
     Dosage: 10 L; EVERY DAY; IP
     Route: 033
     Dates: start: 20080401
  2. ADVAIR DISKUS 100/50 [Concomitant]
  3. ALBUTEROL [Concomitant]
  4. KLONOPIN [Concomitant]
  5. AMIODARONE HCL [Concomitant]
  6. IRON [Concomitant]
  7. GENTAMICIN [Concomitant]
  8. LIPITOR [Concomitant]
  9. NEPHROCAPS [Concomitant]
  10. NORVASC [Concomitant]
  11. OXYCODONE HCL [Concomitant]
  12. PHOSLO [Concomitant]
  13. SENNA [Concomitant]
  14. TYLENOL (CAPLET) [Concomitant]
  15. XANAX [Concomitant]
  16. WELLBUTRIN [Concomitant]

REACTIONS (4)
  - FLUID OVERLOAD [None]
  - PERITONITIS [None]
  - PROCEDURAL PAIN [None]
  - SCROTAL PAIN [None]
